FAERS Safety Report 21343461 (Version 2)
Quarter: 2022Q3

REPORT INFORMATION
  Report Type: Spontaneous
  Country: FR (occurrence: FR)
  Receive Date: 20220916
  Receipt Date: 20220923
  Transmission Date: 20221027
  Serious: No
  Sender: FDA-Public Use
  Company Number: FR-SANOFI-01268345

PATIENT
  Age: 53 Year
  Sex: Female
  Weight: 47 kg

DRUGS (1)
  1. RIFAMPIN [Suspect]
     Active Substance: RIFAMPIN
     Indication: Mycobacterial infection
     Dosage: 450 MG, REMAINING TREATMENT DURATION: 3 MONTHS
     Route: 048

REACTIONS (1)
  - No adverse event [Unknown]
